FAERS Safety Report 4389231-7 (Version None)
Quarter: 2004Q2

REPORT INFORMATION
  Report Type: 
  Country: None (occurrence: None)
  Receive Date: 20040628
  Receipt Date: 20040617
  Transmission Date: 20050107
  Serious: Yes (Other)
  Sender: FDA-Public Use
  Company Number: 8253

PATIENT
  Age: 12 Year
  Sex: Male

DRUGS (1)
  1. METHOTREXATE [Suspect]
     Indication: DERMATOMYOSITIS

REACTIONS (10)
  - AGITATION [None]
  - COPROLALIA [None]
  - HISTIOCYTOSIS HAEMATOPHAGIC [None]
  - INSOMNIA [None]
  - MELAENA [None]
  - NEUROLOGICAL SYMPTOM [None]
  - NUCLEAR MAGNETIC RESONANCE IMAGING BRAIN ABNORMAL [None]
  - PANCYTOPENIA [None]
  - PROTHROMBIN TIME ABNORMAL [None]
  - RED BLOOD CELL SEDIMENTATION RATE DECREASED [None]
